FAERS Safety Report 7395858-0 (Version None)
Quarter: 2011Q2

REPORT INFORMATION
  Report Type: 
  Country: None (occurrence: None)
  Receive Date: 20110405
  Receipt Date: 20110323
  Transmission Date: 20111010
  Serious: Yes (Death, Other)
  Sender: FDA-Public Use
  Company Number: US-BAYER-2011-025467

PATIENT
  Age: 80 Year
  Sex: Female

DRUGS (7)
  1. DIGOXIN [Concomitant]
     Dosage: DAILY DOSE .125 MG
  2. LISINOPRIL [Concomitant]
     Dosage: DAILY DOSE 10 MG
  3. METHOTREXATE [Interacting]
     Indication: RHEUMATOID ARTHRITIS
     Dosage: 20 MG, QD
  4. FUROSEMIDE [Concomitant]
     Dosage: DAILY DOSE 40 MG
  5. METOPROLOL [Concomitant]
     Dosage: 50 MG, BID
  6. ACETAMINOPHEN [Concomitant]
     Dosage: 650 MG, BID
  7. ALEVE (CAPLET) [Suspect]
     Indication: RHEUMATOID ARTHRITIS
     Dosage: 550 MG, BID
     Route: 048

REACTIONS (2)
  - HAEMORRHAGE [None]
  - RENAL IMPAIRMENT [None]
